FAERS Safety Report 8060721-9 (Version None)
Quarter: 2012Q1

REPORT INFORMATION
  Report Type: 
  Country: None (occurrence: None)
  Receive Date: 20120120
  Receipt Date: 20120118
  Transmission Date: 20120608
  Serious: Yes (Hospitalization)
  Sender: FDA-Public Use
  Company Number: GB-ROCHE-1031373

PATIENT
  Age: 26 Year
  Sex: Female

DRUGS (2)
  1. ISOTRETINOIN [Suspect]
     Indication: ACNE
     Route: 048
     Dates: start: 20111102, end: 20111227
  2. LYMECYCLINE [Suspect]
     Indication: ACNE
     Route: 048
     Dates: start: 20111212, end: 20120104

REACTIONS (3)
  - BENIGN INTRACRANIAL HYPERTENSION [None]
  - BLISTER [None]
  - CHAPPED LIPS [None]
